FAERS Safety Report 15719817 (Version 1)
Quarter: 2018Q4

REPORT INFORMATION
  Report Type: Spontaneous
  Country: GB (occurrence: GB)
  Receive Date: 20181213
  Receipt Date: 20181213
  Transmission Date: 20190205
  Serious: Yes (Other)
  Sender: FDA-Public Use
  Company Number: GB-TEVA-2018-GB-985810

PATIENT
  Age: 27 Year
  Sex: Female
  Weight: 71 kg

DRUGS (4)
  1. MODAFINIL. [Concomitant]
     Active Substance: MODAFINIL
     Dosage: 4 DOSAGE FORMS DAILY;
     Dates: start: 20180515
  2. FOLIC ACID. [Suspect]
     Active Substance: FOLIC ACID
     Dates: start: 20181108
  3. PREDNISOLONE. [Concomitant]
     Active Substance: PREDNISOLONE
     Dosage: 6 DOSAGE FORMS DAILY;
     Dates: start: 20181108
  4. FEXOFENADINE [Concomitant]
     Active Substance: FEXOFENADINE\FEXOFENADINE HYDROCHLORIDE
     Indication: HYPERSENSITIVITY
     Dosage: 1 DOSAGE FORMS DAILY;
     Dates: start: 20181108

REACTIONS (2)
  - Rash [Unknown]
  - Eye oedema [Unknown]

NARRATIVE: CASE EVENT DATE: 20181114
